FAERS Safety Report 6510273-7 (Version None)
Quarter: 2009Q4

REPORT INFORMATION
  Report Type: 
  Country: None (occurrence: None)
  Receive Date: 20091221
  Receipt Date: 20091221
  Transmission Date: 20100525
  Serious: Yes (Other)
  Sender: FDA-Public Use
  Company Number: None

PATIENT
  Age: 78 Year
  Sex: Male
  Weight: 74.3899 kg

DRUGS (1)
  1. FENTANYL-75 [Suspect]
     Indication: PAIN
     Dosage: 75 MCG/HR 1PATCH EVERY 3 DAY CUTANEOUS
     Route: 003
     Dates: start: 20081031, end: 20090804

REACTIONS (4)
  - BEDRIDDEN [None]
  - GENERAL PHYSICAL HEALTH DETERIORATION [None]
  - MEMORY IMPAIRMENT [None]
  - PSYCHOTIC DISORDER [None]
